FAERS Safety Report 9133122 (Version 1)
Quarter: 2013Q1

REPORT INFORMATION
  Report Type: Spontaneous
  Country: US (occurrence: US)
  Receive Date: 20130301
  Receipt Date: 20130301
  Transmission Date: 20140127
  Serious: No
  Sender: FDA-Public Use
  Company Number: US-ASTRAZENECA-2013SE11699

PATIENT
  Age: 90 Year
  Sex: Female
  Weight: 77.1 kg

DRUGS (3)
  1. NEXIUM [Suspect]
     Indication: DYSPEPSIA
     Route: 048
  2. NEXIUM [Suspect]
     Indication: DYSPEPSIA
     Route: 048
  3. UNSPECIFIED [Concomitant]

REACTIONS (5)
  - Gait disturbance [Unknown]
  - Weight increased [Unknown]
  - Diarrhoea [Unknown]
  - Intentional drug misuse [Unknown]
  - Incorrect drug administration duration [Unknown]
